FAERS Safety Report 5734276-5 (Version None)
Quarter: 2008Q2

REPORT INFORMATION
  Report Type: 
  Country: None (occurrence: None)
  Receive Date: 20080507
  Receipt Date: 20080425
  Transmission Date: 20081010
  Serious: Yes (Hospitalization)
  Sender: FDA-Public Use
  Company Number: 2008BI004289

PATIENT
  Age: 58 Year
  Sex: Female

DRUGS (16)
  1. TYSABRI [Suspect]
     Indication: MULTIPLE SCLEROSIS
     Dosage: 300 MG; QM; IV
     Route: 042
     Dates: start: 20070917, end: 20080204
  2. TYSABRI [Suspect]
  3. MEPERIDINE HCL [Concomitant]
  4. FENTANYL [Concomitant]
  5. CELEBREX [Concomitant]
  6. CLONAZEPAM [Concomitant]
  7. LORAZEPAM [Concomitant]
  8. CITALOPRAM HYDROBROMIDE [Concomitant]
  9. PINAVERIUM BROMIDE [Concomitant]
  10. DEILECTIN [Concomitant]
  11. DOCUSATE SODIUM [Concomitant]
  12. IBUPROFEN [Concomitant]
  13. VITAMIN B-12 [Concomitant]
  14. CALCITONIN [Concomitant]
  15. MEDICAL MARIJUANA [Concomitant]
  16. DULCOLAX [Concomitant]

REACTIONS (15)
  - ABASIA [None]
  - ASTHENIA [None]
  - ATAXIA [None]
  - BRONCHITIS [None]
  - COUGH [None]
  - DISEASE PROGRESSION [None]
  - DYSPNOEA EXERTIONAL [None]
  - DYSSTASIA [None]
  - MORAXELLA INFECTION [None]
  - MULTIPLE SCLEROSIS RELAPSE [None]
  - MUSCULAR WEAKNESS [None]
  - PARESIS [None]
  - PNEUMONIA [None]
  - POSTNASAL DRIP [None]
  - SINUS CONGESTION [None]
